FAERS Safety Report 22848475 (Version 5)
Quarter: 2024Q2

REPORT INFORMATION
  Report Type: Spontaneous
  Country: US (occurrence: US)
  Receive Date: 20230822
  Receipt Date: 20240412
  Transmission Date: 20240716
  Serious: No
  Sender: FDA-Public Use
  Company Number: US-BRISTOL-MYERS SQUIBB COMPANY-2023-117762

PATIENT
  Age: 76 Year
  Sex: Male
  Weight: 103.87 kg

DRUGS (1)
  1. REVLIMID [Suspect]
     Active Substance: LENALIDOMIDE
     Indication: Plasma cell myeloma
     Route: 048

REACTIONS (4)
  - Tooth abscess [Not Recovered/Not Resolved]
  - Incontinence [Unknown]
  - Product distribution issue [Unknown]
  - Diarrhoea [Not Recovered/Not Resolved]
